FAERS Safety Report 21885796 (Version 1)
Quarter: 2023Q1

REPORT INFORMATION
  Report Type: Spontaneous
  Country: US (occurrence: None)
  Receive Date: 20230118
  Receipt Date: 20230118
  Transmission Date: 20230417
  Serious: Yes (Other)
  Sender: FDA-Public Use
  Company Number: None

PATIENT
  Age: 44 Year
  Sex: Female

DRUGS (16)
  1. OPSUMIT [Suspect]
     Active Substance: MACITENTAN
     Indication: Pulmonary hypertension
     Dosage: FREQUENCY : DAILY;?
     Route: 048
     Dates: start: 20151102
  2. TADALAFIL [Concomitant]
     Active Substance: TADALAFIL
  3. SELEXIPAG [Concomitant]
     Active Substance: SELEXIPAG
  4. GLIPIZIDE [Concomitant]
     Active Substance: GLIPIZIDE
  5. PREDNISONE [Concomitant]
     Active Substance: PREDNISONE
  6. symbicort HFA [Concomitant]
  7. OMEPRAZOLE [Concomitant]
     Active Substance: OMEPRAZOLE
  8. GABAPENTIN [Concomitant]
     Active Substance: GABAPENTIN
  9. ADVAIR DISKUS [Concomitant]
     Active Substance: FLUTICASONE PROPIONATE\SALMETEROL XINAFOATE
  10. FUROSEMIDE [Concomitant]
     Active Substance: FUROSEMIDE
  11. ALBUTEROL [Concomitant]
     Active Substance: ALBUTEROL
  12. EMPAGLIFLOZIN [Concomitant]
     Active Substance: EMPAGLIFLOZIN
  13. POTASSIUM CHLORIDE [Concomitant]
     Active Substance: POTASSIUM CHLORIDE
  14. METFORMIN [Concomitant]
     Active Substance: METFORMIN HYDROCHLORIDE
  15. VITAMIN D3 [Concomitant]
     Active Substance: CHOLECALCIFEROL
  16. ALBUTEROL SULFATE [Concomitant]
     Active Substance: ALBUTEROL SULFATE

REACTIONS (6)
  - SARS-CoV-2 test positive [None]
  - Dyspnoea [None]
  - Wheezing [None]
  - Pyrexia [None]
  - Cough [None]
  - Bronchitis [None]

NARRATIVE: CASE EVENT DATE: 20221219
